FAERS Safety Report 10398393 (Version 1)
Quarter: 2014Q1

REPORT INFORMATION
  Report Type: Spontaneous
  Country: US (occurrence: None)
  Receive Date: 20130815
  Receipt Date: 20130815
  Transmission Date: 20141002
  Serious: Yes (Other)
  Sender: FDA-Public Use
  Company Number: ADR-2010-8578

PATIENT
  Age: 21 Year
  Sex: Male

DRUGS (1)
  1. LIORESAL INTRATHECAL (BACLOFEN INJECTION) 2000 MCG/ML [Suspect]
     Indication: PRODUCT USED FOR UNKNOWN INDICATION
     Dosage: UNK MCG,
     Route: 037

REACTIONS (5)
  - Stress [None]
  - Anxiety [None]
  - Muscle tightness [None]
  - Dysuria [None]
  - Somnolence [None]
